FAERS Safety Report 17945872 (Version 2)
Quarter: 2020Q3

REPORT INFORMATION
  Report Type: Report from Study
  Country: FR (occurrence: FR)
  Receive Date: 20200626
  Receipt Date: 20200703
  Transmission Date: 20201103
  Serious: Yes (Death, Hospitalization, Other)
  Sender: FDA-Public Use
  Company Number: FR-BRISTOL-MYERS SQUIBB COMPANY-BMS-2020-048294

PATIENT
  Age: 61 Year
  Sex: Male
  Weight: 63 kg

DRUGS (35)
  1. PREDNISOLONE. [Concomitant]
     Active Substance: PREDNISOLONE
     Dosage: 20 MILLIGRAM
     Route: 048
     Dates: start: 20200324
  2. LACOSAMIDE. [Concomitant]
     Active Substance: LACOSAMIDE
     Indication: EPILEPSY
     Dosage: 100 MILLIGRAM
     Route: 048
     Dates: start: 20200213, end: 20200218
  3. KEPPRA [Concomitant]
     Active Substance: LEVETIRACETAM
     Indication: SEIZURE
     Dosage: 1000 MILLIGRAM
     Route: 048
     Dates: start: 20200307, end: 20200309
  4. HYPNOVEL [MIDAZOLAM] [Concomitant]
     Active Substance: MIDAZOLAM
     Dosage: 500 MICROGRAM
     Route: 042
     Dates: start: 20200609
  5. PREDNISOLONE. [Concomitant]
     Active Substance: PREDNISOLONE
     Dosage: 20 MILLIGRAM
     Route: 048
     Dates: start: 20200312, end: 20200317
  6. DIFFU K [Concomitant]
     Active Substance: POTASSIUM CHLORIDE
     Indication: PRODUCT USED FOR UNKNOWN INDICATION
     Dosage: 600 MILLIGRAM
     Route: 048
     Dates: start: 20200309, end: 20200323
  7. CEFTRIAXONE. [Concomitant]
     Active Substance: CEFTRIAXONE
     Indication: ESCHERICHIA BACTERAEMIA
     Dosage: 1 GRAM
     Route: 048
     Dates: start: 20200609
  8. MORPHINE [Concomitant]
     Active Substance: MORPHINE
     Indication: TACHYPNOEA
     Dosage: 0.5 MG/H
     Route: 042
     Dates: start: 20200611
  9. LACOSAMIDE. [Concomitant]
     Active Substance: LACOSAMIDE
     Dosage: 200 MILLIGRAM
     Route: 048
     Dates: start: 20200309
  10. CLOBAZAM. [Concomitant]
     Active Substance: CLOBAZAM
     Indication: EPILEPSY
     Dosage: 15 MILLIGRAM
     Route: 048
     Dates: start: 20200213, end: 20200215
  11. KEPPRA [Concomitant]
     Active Substance: LEVETIRACETAM
     Dosage: 3000 MILLIGRAM
     Route: 048
     Dates: start: 20200608
  12. RIVOTRIL [Concomitant]
     Active Substance: CLONAZEPAM
     Indication: SEIZURE
     Dosage: 1 MILLIGRAM
     Route: 042
     Dates: start: 20200605
  13. DEPAKINE [VALPROIC ACID] [Concomitant]
     Active Substance: VALPROIC ACID
     Indication: SEIZURE
     Dosage: 800 MILLIGRAM
     Route: 048
     Dates: start: 20200608
  14. ROSUVASTATINE [ROSUVASTATIN] [Concomitant]
     Active Substance: ROSUVASTATIN
     Indication: DYSLIPIDAEMIA
     Dosage: 10 MILLIGRAM
     Route: 048
     Dates: start: 20131002
  15. LACOSAMIDE. [Concomitant]
     Active Substance: LACOSAMIDE
     Dosage: 200 MILLIGRAM
     Route: 048
     Dates: start: 20200324, end: 20200402
  16. METHYLPREDNISOLONE. [Concomitant]
     Active Substance: METHYLPREDNISOLONE
     Indication: SEIZURE
     Dosage: 120 MILLIGRAM
     Route: 042
     Dates: start: 20200307, end: 20200307
  17. LOVENOX [Concomitant]
     Active Substance: ENOXAPARIN SODIUM
     Dosage: 4000 MICROLITER; 1 INJECTION IN THE EVENING
     Route: 048
     Dates: start: 20200309, end: 20200322
  18. NIVOLUMAB [Suspect]
     Active Substance: NIVOLUMAB
     Dosage: 240 MILLIGRAM; CYCLE 2
     Route: 042
     Dates: start: 20200303
  19. NIVOLUMAB [Suspect]
     Active Substance: NIVOLUMAB
     Dosage: 240 MILLIGRAM; CYCLE 2
     Route: 042
     Dates: start: 20200317
  20. DIPROSONE [Concomitant]
     Active Substance: BETAMETHASONE DIPROPIONATE
     Indication: PSORIASIS
     Dosage: UNK
     Route: 061
     Dates: start: 20200312
  21. TRIDESONIT [Concomitant]
     Active Substance: DESONIDE
     Indication: PSORIASIS
     Dosage: UNK
     Route: 061
     Dates: start: 20200312
  22. LANSOPRAZOLE. [Concomitant]
     Active Substance: LANSOPRAZOLE
     Indication: PROPHYLAXIS
     Dosage: 15 MILLIGRAM
     Route: 048
     Dates: start: 20200309
  23. URBANYL [Concomitant]
     Active Substance: CLOBAZAM
     Indication: PRODUCT USED FOR UNKNOWN INDICATION
     Dosage: 5 MILLIGRAM, IN THE EVENING
     Route: 065
  24. LACOSAMIDE. [Concomitant]
     Active Substance: LACOSAMIDE
     Dosage: 300 MILLIGRAM
     Route: 048
     Dates: start: 20200403
  25. PREDNISOLONE. [Concomitant]
     Active Substance: PREDNISOLONE
     Indication: SEIZURE
     Dosage: 40 MILLIGRAM
     Route: 048
     Dates: start: 20200310, end: 20200311
  26. PREDNISOLONE. [Concomitant]
     Active Substance: PREDNISOLONE
     Dosage: 10 MILLIGRAM
     Route: 048
     Dates: start: 20200318, end: 20200323
  27. BACTRIM [Concomitant]
     Active Substance: SULFAMETHOXAZOLE\TRIMETHOPRIM
     Indication: PRODUCT USED FOR UNKNOWN INDICATION
     Dosage: 400 MG/80 MG, IN THE EVENING
     Route: 065
  28. INIPOMP [Concomitant]
     Active Substance: PANTOPRAZOLE SODIUM
     Indication: PRODUCT USED FOR UNKNOWN INDICATION
     Dosage: 20 MILLIGRAM, IN THE EVENING
     Route: 065
  29. NIVOLUMAB [Suspect]
     Active Substance: NIVOLUMAB
     Indication: ANAPLASTIC OLIGODENDROGLIOMA
     Dosage: 240 MILLIGRAM; CYCLE 1
     Route: 042
     Dates: start: 20200218, end: 20200317
  30. CLOBAZAM. [Concomitant]
     Active Substance: CLOBAZAM
     Dosage: 10 MILLIGRAM
     Route: 048
     Dates: start: 20200216
  31. METHYLPREDNISOLONE. [Concomitant]
     Active Substance: METHYLPREDNISOLONE
     Dosage: 60 MILLIGRAM
     Route: 048
     Dates: start: 20200308, end: 20200309
  32. TAZOCILLINE [Concomitant]
     Active Substance: PIPERACILLIN SODIUM\TAZOBACTAM SODIUM
     Indication: PYREXIA
     Dosage: 12 GRAM
     Route: 048
     Dates: start: 20200423
  33. HYPNOVEL [MIDAZOLAM] [Concomitant]
     Active Substance: MIDAZOLAM
     Indication: SEIZURE
     Dosage: 1 MG/H
     Route: 042
     Dates: start: 20200609
  34. BETNEVAL [Concomitant]
     Active Substance: BETAMETHASONE VALERATE
     Indication: PRODUCT USED FOR UNKNOWN INDICATION
     Dosage: 0.1 PERCENT; 1 APPLICATION IN THE MORNING, ONCE EVERY 2 DAYS
     Route: 065
  35. FRESUBIN [CAFFEINE;CARBOHYDRATES NOS;FATS NOS;FIBRE, DIETARY;MINERALS [Concomitant]
     Indication: PRODUCT USED FOR UNKNOWN INDICATION
     Dosage: 1 AT 10 AM, 1 AT 4 PM
     Route: 065

REACTIONS (1)
  - Malignant neoplasm progression [Fatal]

NARRATIVE: CASE EVENT DATE: 20200612
